FAERS Safety Report 14209563 (Version 3)
Quarter: 2017Q4

REPORT INFORMATION
  Report Type: Spontaneous
  Country: US (occurrence: US)
  Receive Date: 20171121
  Receipt Date: 20171127
  Transmission Date: 20180321
  Serious: Yes (Hospitalization, Other)
  Sender: FDA-Public Use
  Company Number: US-JNJFOC-20171005515

PATIENT
  Age: 66 Year
  Sex: Female

DRUGS (9)
  1. XARELTO [Suspect]
     Active Substance: RIVAROXABAN
     Indication: ATRIAL FIBRILLATION
     Route: 048
     Dates: end: 20161104
  2. XARELTO [Suspect]
     Active Substance: RIVAROXABAN
     Indication: CEREBROVASCULAR ACCIDENT PROPHYLAXIS
     Route: 048
     Dates: start: 20160912, end: 20161001
  3. XARELTO [Suspect]
     Active Substance: RIVAROXABAN
     Indication: CEREBELLAR INFARCTION
     Route: 048
     Dates: start: 20160801, end: 2016
  4. XARELTO [Suspect]
     Active Substance: RIVAROXABAN
     Indication: CEREBROVASCULAR ACCIDENT PROPHYLAXIS
     Route: 048
     Dates: end: 20161104
  5. XARELTO [Suspect]
     Active Substance: RIVAROXABAN
     Indication: CEREBELLAR INFARCTION
     Route: 048
     Dates: start: 20160912, end: 20161001
  6. XARELTO [Suspect]
     Active Substance: RIVAROXABAN
     Indication: CEREBROVASCULAR ACCIDENT PROPHYLAXIS
     Route: 048
     Dates: start: 20160801, end: 2016
  7. XARELTO [Suspect]
     Active Substance: RIVAROXABAN
     Indication: ATRIAL FIBRILLATION
     Route: 048
     Dates: start: 20160801, end: 2016
  8. XARELTO [Suspect]
     Active Substance: RIVAROXABAN
     Indication: ATRIAL FIBRILLATION
     Route: 048
     Dates: start: 20160912, end: 20161001
  9. XARELTO [Suspect]
     Active Substance: RIVAROXABAN
     Indication: CEREBELLAR INFARCTION
     Route: 048
     Dates: end: 20161104

REACTIONS (3)
  - Internal haemorrhage [Unknown]
  - Brain stem infarction [Unknown]
  - Transient ischaemic attack [Unknown]

NARRATIVE: CASE EVENT DATE: 20161001
